FAERS Safety Report 15855163 (Version 2)
Quarter: 2019Q1

REPORT INFORMATION
  Report Type: Spontaneous
  Country: FR (occurrence: FR)
  Receive Date: 20190122
  Receipt Date: 20190201
  Transmission Date: 20190417
  Serious: Yes (Other)
  Sender: FDA-Public Use
  Company Number: FR-GILEAD-2019-0385184

PATIENT
  Age: 55 Year
  Sex: Male
  Weight: 57.5 kg

DRUGS (1)
  1. ODEFSEY [Suspect]
     Active Substance: EMTRICITABINE\RILPIVIRINE HYDROCHLORIDE\TENOFOVIR ALAFENAMIDE FUMARATE
     Indication: HIV TEST POSITIVE
     Dosage: 1 DF, QD
     Route: 048
     Dates: start: 20180803, end: 20180907

REACTIONS (2)
  - Condition aggravated [Recovered/Resolved]
  - Depression [Recovered/Resolved]

NARRATIVE: CASE EVENT DATE: 20180818
